FAERS Safety Report 9540497 (Version 1)
Quarter: 2013Q3

REPORT INFORMATION
  Report Type: Spontaneous
  Country: US (occurrence: US)
  Receive Date: 20130920
  Receipt Date: 20130920
  Transmission Date: 20140515
  Serious: Yes (Hospitalization, Other)
  Sender: FDA-Public Use
  Company Number: US-ABBVIE-13P-163-1147603-00

PATIENT
  Age: 57 Year
  Sex: Male
  Weight: 82.17 kg

DRUGS (9)
  1. LUPRON DEPOT [Suspect]
     Indication: PROSTATE CANCER
     Route: 030
     Dates: start: 200711
  2. ZOMETA [Suspect]
     Indication: BONE PAIN
     Dosage: APPROXIMATELY 3.5 YEARS
     Dates: start: 200801, end: 2011
  3. XGEVA [Suspect]
     Indication: BONE PAIN
     Dates: start: 2012, end: 201307
  4. CRESTOR [Concomitant]
     Indication: BLOOD CHOLESTEROL INCREASED
  5. KETOCONAZOLE [Concomitant]
     Indication: PROSTATE CANCER
  6. PREDNISONE [Concomitant]
     Indication: ADRENAL DISORDER
  7. RAPAFLO [Concomitant]
     Indication: BLADDER SPASM
  8. SAW PALMETTO [Concomitant]
     Indication: URINARY INCONTINENCE
  9. FISH OIL [Concomitant]
     Indication: VITAMIN SUPPLEMENTATION

REACTIONS (7)
  - Femur fracture [Recovered/Resolved]
  - Fall [Recovered/Resolved]
  - Thrombosis [Recovered/Resolved]
  - Local swelling [Recovered/Resolved]
  - Bone pain [Not Recovered/Not Resolved]
  - Osteoporosis [Not Recovered/Not Resolved]
  - Bone density decreased [Not Recovered/Not Resolved]
